FAERS Safety Report 25902699 (Version 1)
Quarter: 2025Q4

REPORT INFORMATION
  Report Type: Spontaneous
  Country: EU (occurrence: EU)
  Receive Date: 20251009
  Receipt Date: 20251009
  Transmission Date: 20260117
  Serious: Yes (Other)
  Sender: AMGEN
  Company Number: EU-AMGEN-ITASP2025195713

PATIENT
  Age: 61 Year
  Sex: Female

DRUGS (7)
  1. CINACALCET HYDROCHLORIDE [Suspect]
     Active Substance: CINACALCET HYDROCHLORIDE
     Indication: Hyperparathyroidism secondary
     Dosage: 30 MILLIGRAM, QD
     Route: 065
  2. CALCITRIOL [Concomitant]
     Active Substance: CALCITRIOL
     Indication: Hyperparathyroidism secondary
  3. PARICALCITOL [Concomitant]
     Active Substance: PARICALCITOL
     Indication: Hyperparathyroidism secondary
  4. CORTICOSTEROID NOS [Concomitant]
     Active Substance: CORTICOSTEROID NOS
     Indication: Immunosuppressant drug therapy
  5. TACROLIMUS [Concomitant]
     Active Substance: TACROLIMUS
     Indication: Immunosuppressant drug therapy
  6. CYCLOSPORINE [Concomitant]
     Active Substance: CYCLOSPORINE
     Indication: Immunosuppressant drug therapy
  7. MYCOPHENOLIC ACID [Concomitant]
     Active Substance: MYCOPHENOLIC ACID
     Indication: Immunosuppressant drug therapy

REACTIONS (13)
  - Osteomalacia [Recovering/Resolving]
  - Parathyroid tumour benign [Unknown]
  - Thoracic vertebral fracture [Unknown]
  - Hyperparathyroidism [Not Recovered/Not Resolved]
  - Hyperphosphataemia [Recovered/Resolved]
  - Gait disturbance [Recovering/Resolving]
  - Vitamin D deficiency [Recovering/Resolving]
  - Osteoporosis [Recovering/Resolving]
  - Intervertebral disc space narrowing [Unknown]
  - Spinal deformity [Unknown]
  - Tooth disorder [Unknown]
  - Hypercalcaemia [Not Recovered/Not Resolved]
  - Drug ineffective [Unknown]
